FAERS Safety Report 26111616 (Version 1)
Quarter: 2025Q4

REPORT INFORMATION
  Report Type: Spontaneous
  Country: EU (occurrence: EU)
  Receive Date: 20251202
  Receipt Date: 20251202
  Transmission Date: 20260118
  Serious: Yes (Life-Threatening, Hospitalization)
  Sender: RANBAXY
  Company Number: EU-AFSSAPS-LL2025001478

PATIENT
  Age: 59 Year
  Sex: Male
  Weight: 110 kg

DRUGS (2)
  1. ESCITALOPRAM [Suspect]
     Active Substance: ESCITALOPRAM OXALATE
     Indication: Product used for unknown indication
     Dosage: UNK
     Route: 065
  2. GABAPENTIN [Suspect]
     Active Substance: GABAPENTIN
     Indication: Product used for unknown indication
     Dosage: UNK
     Route: 065

REACTIONS (1)
  - Pancreatitis necrotising [Not Recovered/Not Resolved]

NARRATIVE: CASE EVENT DATE: 20250803
